FAERS Safety Report 4824893-9 (Version None)
Quarter: 2005Q4

REPORT INFORMATION
  Report Type: 
  Country: None (occurrence: None)
  Receive Date: 20051110
  Receipt Date: 20051031
  Transmission Date: 20060501
  Serious: Yes (Hospitalization)
  Sender: FDA-Public Use
  Company Number: FR-GLAXOSMITHKLINE-B0398800A

PATIENT
  Age: 72 Year
  Sex: Female

DRUGS (2)
  1. DEROXAT [Suspect]
     Route: 048
     Dates: start: 20050728, end: 20050730
  2. NEBIVOLOL HCL [Suspect]
     Indication: HYPERTENSIVE CRISIS
     Route: 048
     Dates: start: 20050728

REACTIONS (4)
  - FALL [None]
  - HYPONATRAEMIA [None]
  - HYPOTENSION [None]
  - INAPPROPRIATE ANTIDIURETIC HORMONE SECRETION [None]
